FAERS Safety Report 9668372 (Version 2)
Quarter: 2013Q4

REPORT INFORMATION
  Report Type: Spontaneous
  Country: CN (occurrence: CN)
  Receive Date: 20131104
  Receipt Date: 20131104
  Transmission Date: 20140711
  Serious: Yes (Other)
  Sender: FDA-Public Use
  Company Number: PHHY2012CN040107

PATIENT
  Age: 76 Year
  Sex: Female

DRUGS (1)
  1. MIACALCIC [Suspect]
     Indication: ARRHYTHMIA
     Dosage: 100 IU, QD
     Route: 030
     Dates: start: 20111001, end: 20120504

REACTIONS (3)
  - Blood pressure systolic increased [Recovering/Resolving]
  - Headache [Recovering/Resolving]
  - Flushing [Recovering/Resolving]
